FAERS Safety Report 18972505 (Version 1)
Quarter: 2021Q1

REPORT INFORMATION
  Report Type: Spontaneous
  Country: US (occurrence: US)
  Receive Date: 20210304
  Receipt Date: 20210304
  Transmission Date: 20210420
  Serious: Yes (Hospitalization)
  Sender: FDA-Public Use
  Company Number: None

PATIENT
  Age: 75 Year
  Sex: Male

DRUGS (21)
  1. BRILINTA [Suspect]
     Active Substance: TICAGRELOR
  2. FUROSEMIDE. [Suspect]
     Active Substance: FUROSEMIDE
  3. LEVOCETIRIZI [Concomitant]
  4. ROPINIROL [Suspect]
     Active Substance: ROPINIROLE
  5. SMZ/TMP DS [Suspect]
     Active Substance: SULFAMETHOXAZOLE\TRIMETHOPRIM
  6. CLOPIDOGREL [Suspect]
     Active Substance: CLOPIDOGREL BISULFATE
  7. MULTAQ [Suspect]
     Active Substance: DRONEDARONE
  8. PROBIOTIC [Suspect]
     Active Substance: PROBIOTICS NOS
  9. DILTIAZEM ER [Suspect]
     Active Substance: DILTIAZEM
  10. POT CHLORIDE ER [Concomitant]
  11. EZETIMBE [Suspect]
     Active Substance: EZETIMIBE
  12. ISOSORB MONO [Suspect]
     Active Substance: ISOSORBIDE MONONITRATE
  13. TAMSULOSIN [Suspect]
     Active Substance: TAMSULOSIN
  14. REPATHA [Suspect]
     Active Substance: EVOLOCUMAB
     Indication: HYPERLIPIDAEMIA
     Dosage: ?          OTHER DOSE:1 PEN;?
     Route: 058
     Dates: start: 20191022
  15. ELIQUIS [Suspect]
     Active Substance: APIXABAN
  16. ESCITALOPRAM [Suspect]
     Active Substance: ESCITALOPRAM OXALATE
  17. LINEZOLID. [Suspect]
     Active Substance: LINEZOLID
  18. OMEPRAZOLE. [Suspect]
     Active Substance: OMEPRAZOLE
  19. LISINOPRIL. [Suspect]
     Active Substance: LISINOPRIL
  20. FINASTERIDE. [Suspect]
     Active Substance: FINASTERIDE
  21. METOPROL TAR [Concomitant]

REACTIONS (1)
  - Infection [None]

NARRATIVE: CASE EVENT DATE: 202102
